FAERS Safety Report 25149500 (Version 1)
Quarter: 2025Q2

REPORT INFORMATION
  Report Type: Spontaneous
  Country: US (occurrence: None)
  Receive Date: 20250401
  Receipt Date: 20250401
  Transmission Date: 20250717
  Serious: Yes (Hospitalization)
  Sender: FDA-CTU
  Company Number: None

PATIENT
  Sex: Female

DRUGS (5)
  1. LENALIDOMIDE [Suspect]
     Active Substance: LENALIDOMIDE
     Indication: Plasma cell myeloma in remission
     Dosage: FREQUENCY : DAILY;?
     Route: 048
     Dates: start: 20240326
  2. ASPIRIN CHW 81MG [Concomitant]
  3. FLUOXETINE TAB 20MG [Concomitant]
  4. IMODIUM A-D LIQ 1 MG/7.5 [Concomitant]
  5. TYLENOL TAB 500MG [Concomitant]

REACTIONS (2)
  - Hospitalisation [None]
  - Therapy interrupted [None]
